FAERS Safety Report 24674421 (Version 1)
Quarter: 2024Q4

REPORT INFORMATION
  Report Type: Spontaneous
  Country: TH (occurrence: None)
  Receive Date: 20241128
  Receipt Date: 20241128
  Transmission Date: 20250114
  Serious: Yes (Hospitalization)
  Sender: ORION
  Company Number: TH-MLMSERVICE-20241118-PI259997-00218-1

PATIENT
  Age: 36 Year
  Sex: Female

DRUGS (9)
  1. METHOTREXATE [Suspect]
     Active Substance: METHOTREXATE
     Indication: Polyarteritis nodosa
  2. METHOTREXATE [Suspect]
     Active Substance: METHOTREXATE
     Indication: Cryoglobulinaemia
  3. RITUXIMAB [Suspect]
     Active Substance: RITUXIMAB
     Indication: Polyarteritis nodosa
     Dosage: SHE HAD BEEN ON RITUXIMAB FOR THE PAST SIX YEARS
  4. RITUXIMAB [Suspect]
     Active Substance: RITUXIMAB
     Indication: Cryoglobulinaemia
     Dosage: TWO DOSES OF RITUXIMAB
     Dates: start: 202308, end: 20231022
  5. RITUXIMAB [Suspect]
     Active Substance: RITUXIMAB
     Dosage: TWO ADDITIONAL DOSES
     Dates: start: 202311
  6. AZATHIOPRINE [Suspect]
     Active Substance: AZATHIOPRINE
     Indication: Polyarteritis nodosa
  7. AZATHIOPRINE [Suspect]
     Active Substance: AZATHIOPRINE
     Indication: Cryoglobulinaemia
  8. TOCILIZUMAB [Suspect]
     Active Substance: TOCILIZUMAB
     Indication: Polyarteritis nodosa
     Dates: end: 20231102
  9. TOCILIZUMAB [Suspect]
     Active Substance: TOCILIZUMAB
     Indication: Cryoglobulinaemia

REACTIONS (6)
  - Immunodeficiency [Unknown]
  - Post-acute COVID-19 syndrome [Recovering/Resolving]
  - Organising pneumonia [Recovering/Resolving]
  - COVID-19 pneumonia [Recovering/Resolving]
  - Upper respiratory tract infection [Recovered/Resolved]
  - Product use in unapproved indication [Unknown]

NARRATIVE: CASE EVENT DATE: 20230101
